FAERS Safety Report 4740573-2 (Version None)
Quarter: 2005Q3

REPORT INFORMATION
  Report Type: 
  Country: None (occurrence: None)
  Receive Date: 20050810
  Receipt Date: 20050719
  Transmission Date: 20060218
  Serious: Yes (Hospitalization)
  Sender: FDA-Public Use
  Company Number: 2005UW10707

PATIENT
  Age: 22211 Day
  Sex: Male
  Weight: 98.2 kg

DRUGS (15)
  1. IRESSA [Suspect]
     Indication: RENAL CELL CARCINOMA STAGE IV
     Dosage: CYCLE 1
     Route: 048
     Dates: start: 20050627
  2. PEG INTERFERON [Suspect]
     Indication: RENAL CELL CARCINOMA STAGE IV
     Dosage: CYCLE 1
     Route: 058
     Dates: start: 20050627, end: 20050711
  3. GLYBURIDE [Concomitant]
  4. LISINOPRIL [Concomitant]
  5. TAMSULOSIN [Concomitant]
  6. ATENOLOL [Concomitant]
  7. HYDROCHLOROTHIAZIDE [Concomitant]
  8. FINASTERIDE [Concomitant]
  9. ALPRAZOLAM [Concomitant]
  10. HYDROCODONE [Concomitant]
     Dosage: EVERY 6 HOURS
  11. ASCORBIC ACID [Concomitant]
  12. MULTI-VITAMINS [Concomitant]
  13. VITAMIN B COMPLEX CAP [Concomitant]
  14. IRON [Concomitant]
  15. COMPAZINE [Concomitant]

REACTIONS (3)
  - BLOOD SODIUM DECREASED [None]
  - FATIGUE [None]
  - RENAL FAILURE ACUTE [None]
